FAERS Safety Report 8174224-4 (Version None)
Quarter: 2012Q1

REPORT INFORMATION
  Report Type: 
  Country: None (occurrence: None)
  Receive Date: 20120229
  Receipt Date: 20120120
  Transmission Date: 20120608
  Serious: Yes (Hospitalization)
  Sender: FDA-Public Use
  Company Number: CA-JNJFOC-20110902323

PATIENT
  Sex: Female
  Weight: 64 kg

DRUGS (4)
  1. REMICADE [Suspect]
     Indication: CROHN'S DISEASE
     Route: 042
     Dates: start: 20101001, end: 20110801
  2. VITAMINS (NOS) [Concomitant]
  3. ENTOCORT EC [Concomitant]
  4. OXYCONTIN [Concomitant]

REACTIONS (1)
  - INTESTINAL RESECTION [None]
